FAERS Safety Report 5665415-2 (Version None)
Quarter: 2008Q1

REPORT INFORMATION
  Report Type: 
  Country: None (occurrence: None)
  Receive Date: 20080314
  Receipt Date: 20071206
  Transmission Date: 20080703
  Serious: No
  Sender: FDA-Public Use
  Company Number: US-ABBOTT-07P-163-0427771-00

PATIENT
  Sex: Female
  Weight: 64.468 kg

DRUGS (13)
  1. HUMIRA [Suspect]
     Indication: CROHN'S DISEASE
     Route: 058
     Dates: start: 20071121, end: 20071121
  2. HUMIRA [Suspect]
     Route: 058
     Dates: start: 20071122, end: 20071122
  3. HUMIRA [Suspect]
     Route: 058
  4. HUMIRA [Suspect]
     Route: 058
     Dates: start: 20071207, end: 20071207
  5. HUMIRA [Suspect]
     Route: 058
     Dates: start: 20071208
  6. MERCAPTOPURINE [Concomitant]
     Indication: DRUG USE FOR UNKNOWN INDICATION
  7. CAPTOPURINE [Concomitant]
     Indication: DRUG USE FOR UNKNOWN INDICATION
  8. MESALAMINE [Concomitant]
     Indication: DRUG USE FOR UNKNOWN INDICATION
  9. LEVOFLOXACIN [Concomitant]
     Indication: DRUG USE FOR UNKNOWN INDICATION
  10. ESCITALOPRAM OXALATE [Concomitant]
     Indication: DRUG USE FOR UNKNOWN INDICATION
  11. AMITRIPTYLINE HCL [Concomitant]
     Indication: DRUG USE FOR UNKNOWN INDICATION
  12. HYDROMORPHONE HYDROCHLORIDE [Concomitant]
     Indication: DRUG USE FOR UNKNOWN INDICATION
  13. ALPRAZOLAM [Concomitant]
     Indication: DRUG USE FOR UNKNOWN INDICATION

REACTIONS (8)
  - ABDOMINAL PAIN [None]
  - ACCIDENTAL EXPOSURE [None]
  - BRAIN OEDEMA [None]
  - INJECTION SITE PAIN [None]
  - MEMORY IMPAIRMENT [None]
  - SCAN ABDOMEN ABNORMAL [None]
  - TREMOR [None]
  - VASCULAR RUPTURE [None]
